FAERS Safety Report 18221319 (Version 1)
Quarter: 2020Q3

REPORT INFORMATION
  Report Type: Spontaneous
  Country: US (occurrence: US)
  Receive Date: 20200901
  Receipt Date: 20200901
  Transmission Date: 20201103
  Serious: Yes (Hospitalization)
  Sender: FDA-Public Use
  Company Number: None

PATIENT
  Age: 34 Year
  Sex: Female

DRUGS (3)
  1. RAPAMUNE [Concomitant]
     Active Substance: SIROLIMUS
  2. NEORAL [Concomitant]
     Active Substance: CYCLOSPORINE
  3. RAPAMUNE [Suspect]
     Active Substance: SIROLIMUS
     Indication: CHRONIC KIDNEY DISEASE
     Route: 048

REACTIONS (1)
  - Hospitalisation [None]

NARRATIVE: CASE EVENT DATE: 20200831
